FAERS Safety Report 8388728-2 (Version None)
Quarter: 2012Q2

REPORT INFORMATION
  Report Type: 
  Country: None (occurrence: None)
  Receive Date: 20120527
  Receipt Date: 20120524
  Transmission Date: 20120825
  Serious: Yes (Other)
  Sender: FDA-Public Use
  Company Number: US-AMGEN-USASP2012016978

PATIENT
  Age: 79 Year
  Sex: Female
  Weight: 48.98 kg

DRUGS (3)
  1. TOPROL-XL [Concomitant]
  2. PROLIA [Suspect]
     Indication: OSTEOPOROSIS
     Dates: start: 20120105
  3. CALCIUM WITH VITAMIN D             /00944201/ [Concomitant]

REACTIONS (8)
  - INJECTION SITE DISCOLOURATION [None]
  - JOINT LOCK [None]
  - INJECTION SITE INDURATION [None]
  - INJECTION SITE PAIN [None]
  - MUSCULOSKELETAL PAIN [None]
  - PRE-EXISTING CONDITION IMPROVED [None]
  - HYPOAESTHESIA [None]
  - PAIN IN EXTREMITY [None]
